FAERS Safety Report 8796460 (Version 1)
Quarter: 2012Q4

REPORT INFORMATION
  Report Type: 
  Country: US (occurrence: US)
  Receive Date: 20120919
  Receipt Date: 20120919
  Transmission Date: 20130627
  Serious: No
  Sender: FDA-Public Use
  Company Number: US-ASTRAZENECA-2012SE70756

PATIENT
  Age: 59 Year
  Sex: Female

DRUGS (2)
  1. PULMICORT FLEXHALER [Suspect]
     Route: 055
  2. PRO AIR H [Concomitant]

REACTIONS (3)
  - Asthma [Unknown]
  - Adverse event [Unknown]
  - Malaise [Unknown]
